FAERS Safety Report 9417075 (Version 2)
Quarter: 2013Q4

REPORT INFORMATION
  Report Type: Spontaneous
  Country: US (occurrence: None)
  Receive Date: 20130722
  Receipt Date: 20131108
  Transmission Date: 20140711
  Serious: Yes (Hospitalization, Other)
  Sender: FDA-Public Use
  Company Number: SYM-2013-06737

PATIENT
  Age: 57 Year
  Sex: Female

DRUGS (4)
  1. WELLBUTRIN (BUPROPION HYDROCHLORIDE) (BUPROPION HYDROCHLORIDE) [Suspect]
     Indication: DEPRESSION
  2. CITALOPRAM [Suspect]
     Indication: DEPRESSION
     Dosage: DAILY.
  3. BUPRENORPHINE [Suspect]
     Indication: DRUG DEPENDENCE
     Dosage: DAILY.
  4. MIRTAZAPINE [Concomitant]

REACTIONS (10)
  - Dizziness [None]
  - Convulsion [None]
  - Unresponsive to stimuli [None]
  - Decerebrate posture [None]
  - Cerebrovascular accident [None]
  - Serotonin syndrome [None]
  - Labile blood pressure [None]
  - Muscle rigidity [None]
  - Hyperreflexia [None]
  - Tachycardia [None]
